FAERS Safety Report 6916262-2 (Version None)
Quarter: 2010Q3

REPORT INFORMATION
  Report Type: 
  Country: None (occurrence: None)
  Receive Date: 20100810
  Receipt Date: 20100729
  Transmission Date: 20110219
  Serious: Yes (Life-Threatening, Hospitalization, Other)
  Sender: FDA-Public Use
  Company Number: US-PFIZER INC-2010095827

PATIENT
  Sex: Male
  Weight: 104 kg

DRUGS (4)
  1. VFEND [Suspect]
     Indication: COCCIDIOIDOMYCOSIS
     Dosage: UNK
     Route: 048
     Dates: start: 20000101
  2. ACTOS [Concomitant]
     Indication: DIABETES MELLITUS
     Dosage: 20 MG, 2X/DAY
     Route: 048
  3. METFORMIN [Concomitant]
     Indication: DIABETES MELLITUS
     Dosage: 1000 MG, 2X/DAY
     Route: 048
     Dates: start: 20000101
  4. GLIPIZIDE [Concomitant]
     Indication: DIABETES MELLITUS
     Dosage: 2 MG, 2X/DAY

REACTIONS (2)
  - MASS [None]
  - PHOTOSENSITIVITY REACTION [None]
